FAERS Safety Report 8627133 (Version 3)
Quarter: 2012Q4

REPORT INFORMATION
  Report Type: 
  Country: AU (occurrence: AU)
  Receive Date: 20120621
  Receipt Date: 20121019
  Transmission Date: 20130627
  Serious: Yes (Other)
  Sender: FDA-Public Use
  Company Number: AU-AMGEN-AUSSP2012037654

PATIENT
  Age: 35 Year

DRUGS (5)
  1. NEULASTA [Suspect]
     Indication: NEUTROPENIA
     Dosage: UNK
  2. BLEOMYCIN [Concomitant]
     Indication: GERM CELL CANCER
  3. ETOPOSIDE [Concomitant]
     Indication: GERM CELL CANCER
  4. CISPLATIN [Concomitant]
     Indication: GERM CELL CANCER
  5. EMEND                              /01627301/ [Concomitant]

REACTIONS (2)
  - Pancytopenia [Unknown]
  - No therapeutic response [Unknown]
